FAERS Safety Report 17450501 (Version 1)
Quarter: 2020Q1

REPORT INFORMATION
  Report Type: Spontaneous
  Country: US (occurrence: US)
  Receive Date: 20200224
  Receipt Date: 20200224
  Transmission Date: 20200409
  Serious: No
  Sender: FDA-Public Use
  Company Number: NVSC2020US050402

PATIENT
  Sex: Female

DRUGS (1)
  1. LATANOPROST. [Suspect]
     Active Substance: LATANOPROST
     Indication: EYE DISORDER
     Dosage: 0.005 %
     Route: 065
     Dates: start: 20190112

REACTIONS (3)
  - Eye irritation [Unknown]
  - Eye pain [Unknown]
  - Foreign body in eye [Unknown]
